FAERS Safety Report 6061090-6 (Version None)
Quarter: 2009Q1

REPORT INFORMATION
  Report Type: 
  Country: None (occurrence: None)
  Receive Date: 20090130
  Receipt Date: 20090130
  Transmission Date: 20090719
  Serious: Yes (Hospitalization)
  Sender: FDA-Public Use
  Company Number: None

PATIENT
  Sex: Male

DRUGS (2)
  1. RANIBIZUMAB (1.0 MG/0.1CC, GENENTECH) [Suspect]
     Indication: DIABETIC RETINOPATHY
     Dosage: 0.5MG, MONTHLY, INTRAVIT
  2. RANIBIZUMAB (1.0 MG/0.1CC, GENENTECH) [Suspect]
     Indication: IRIS NEOVASCULARISATION
     Dosage: 0.5MG, MONTHLY, INTRAVIT

REACTIONS (2)
  - CARDIAC FAILURE CONGESTIVE [None]
  - MYOCARDIAL INFARCTION [None]
